FAERS Safety Report 5249689-8 (Version None)
Quarter: 2007Q1

REPORT INFORMATION
  Report Type: 
  Country: None (occurrence: None)
  Receive Date: 20070228
  Receipt Date: 20060821
  Transmission Date: 20070707
  Serious: No
  Sender: FDA-Public Use
  Company Number: US-GLAXOSMITHKLINE-A0617466A

PATIENT
  Age: 51 Year
  Sex: Female

DRUGS (11)
  1. IMITREX [Suspect]
     Indication: MIGRAINE
     Route: 058
     Dates: start: 20030101, end: 20030101
  2. AMERGE [Suspect]
     Indication: MIGRAINE
     Dosage: 2.5MG AS REQUIRED
     Route: 048
     Dates: end: 20060816
  3. HYDROCODONE [Concomitant]
  4. NEXIUM [Concomitant]
  5. NORFLEX [Concomitant]
  6. BACLOFEN [Concomitant]
  7. RESTORIL [Concomitant]
  8. XANAX [Concomitant]
  9. MAXZIDE [Concomitant]
  10. PHENERGAN HCL [Concomitant]
  11. COMPAZINE SUPPOSITORIES [Concomitant]

REACTIONS (7)
  - BACK PAIN [None]
  - CHEST PAIN [None]
  - DYSPNOEA [None]
  - FEELING HOT [None]
  - HYPOAESTHESIA [None]
  - PAIN [None]
  - TREMOR [None]
